FAERS Safety Report 10581020 (Version 1)
Quarter: 2014Q4

REPORT INFORMATION
  Report Type: Not Available
  Country: US (occurrence: US)
  Receive Date: 20141113
  Receipt Date: 20141113
  Transmission Date: 20150529
  Serious: Yes (Hospitalization)
  Sender: FDA-Public Use
  Company Number: US-LUPIN PHARMACEUTICALS INC.-E2B_00001560

PATIENT
  Age: 50 Year
  Sex: Female
  Weight: 136.2 kg

DRUGS (3)
  1. BACLOFEN. [Concomitant]
     Active Substance: BACLOFEN
     Indication: MUSCLE SPASMS
  2. LISINOPRIL AND HYDROCHLOROTHIAZIDE TABLETS USP 20MG/25MG [Suspect]
     Active Substance: HYDROCHLOROTHIAZIDE\LISINOPRIL
     Indication: HYPERTENSION
     Dates: start: 201203, end: 20131205
  3. MOBIC [Concomitant]
     Active Substance: MELOXICAM
     Indication: INFLAMMATION

REACTIONS (2)
  - Cough [Recovered/Resolved]
  - Swollen tongue [Recovering/Resolving]

NARRATIVE: CASE EVENT DATE: 201203
